FAERS Safety Report 10506909 (Version 1)
Quarter: 2014Q4

REPORT INFORMATION
  Report Type: Spontaneous
  Country: US (occurrence: None)
  Receive Date: 20141008
  Receipt Date: 20141008
  Transmission Date: 20150528
  Serious: No
  Sender: FDA-Public Use
  Company Number: None

PATIENT
  Age: 67 Year
  Sex: Male
  Weight: 102.5 kg

DRUGS (2)
  1. ACETAMINOPHEN/HYDROCODONE [Suspect]
     Active Substance: ACETAMINOPHEN\HYDROCODONE
     Dosage: MG, PO
     Route: 048
     Dates: start: 20130523, end: 20130919
  2. LOSARTAN [Suspect]
     Active Substance: LOSARTAN
     Dosage: MG, EVERY DAY, PO
     Route: 048
     Dates: start: 20110816, end: 20130919

REACTIONS (5)
  - Rash [None]
  - Urticaria [None]
  - Angioedema [None]
  - Pruritus [None]
  - Hypotension [None]

NARRATIVE: CASE EVENT DATE: 20130922
